FAERS Safety Report 6985071-0 (Version None)
Quarter: 2010Q3

REPORT INFORMATION
  Report Type: 
  Country: None (occurrence: None)
  Receive Date: 20100915
  Receipt Date: 20100907
  Transmission Date: 20110219
  Serious: Yes (Hospitalization, Other)
  Sender: FDA-Public Use
  Company Number: PHHY2010TW58951

PATIENT
  Age: 35 Year
  Sex: Female

DRUGS (3)
  1. CAFERGOT [Suspect]
     Indication: HEADACHE
     Dosage: 3 TABLETS DAILY
  2. MACROLIDES [Interacting]
  3. ERYTHROMYCIN [Concomitant]
     Indication: BRONCHITIS
     Dosage: 500 MG, TID

REACTIONS (9)
  - CONDITION AGGRAVATED [None]
  - DRUG INTERACTION [None]
  - ERGOT POISONING [None]
  - HYPOAESTHESIA [None]
  - PARAESTHESIA [None]
  - PERIPHERAL COLDNESS [None]
  - RADIAL PULSE ABNORMAL [None]
  - SENSORY DISTURBANCE [None]
  - VASOSPASM [None]
